FAERS Safety Report 7660463-5 (Version None)
Quarter: 2011Q3

REPORT INFORMATION
  Report Type: 
  Country: None (occurrence: None)
  Receive Date: 20110805
  Receipt Date: 20110725
  Transmission Date: 20111222
  Serious: Yes (Death, Other)
  Sender: FDA-Public Use
  Company Number: IT-GENENTECH-322267

PATIENT
  Sex: Male

DRUGS (6)
  1. CYCLOPHOSPHAMIDE [Suspect]
     Indication: DIFFUSE LARGE B-CELL LYMPHOMA
     Dosage: 1750 MG/M2, UNK
     Route: 065
  2. VINCRISTINE [Suspect]
     Indication: DIFFUSE LARGE B-CELL LYMPHOMA
     Dosage: 1.4 MG/M2, UNK
     Route: 065
  3. DOXORUBICIN HCL [Suspect]
     Indication: DIFFUSE LARGE B-CELL LYMPHOMA
     Dosage: 50 MG/M2, UNK
     Route: 065
  4. PREDNISONE [Suspect]
     Indication: DIFFUSE LARGE B-CELL LYMPHOMA
     Dosage: 100 MG, UNK
     Route: 065
  5. METHOTREXATE [Suspect]
     Indication: PROPHYLAXIS
     Dosage: 12 MG, UNK
     Route: 037
  6. RITUXIMAB [Suspect]
     Indication: DIFFUSE LARGE B-CELL LYMPHOMA
     Dosage: 375 MG/M2, UNK
     Route: 065

REACTIONS (17)
  - PERIPHERAL SENSORY NEUROPATHY [None]
  - SUBDURAL HAEMATOMA [None]
  - THROMBOCYTOPENIA [None]
  - GASTROINTESTINAL TOXICITY [None]
  - PYREXIA [None]
  - MYELODYSPLASTIC SYNDROME [None]
  - NEUROPATHY PERIPHERAL [None]
  - NEUTROPENIA [None]
  - CARDIOTOXICITY [None]
  - INTRACRANIAL HYPOTENSION [None]
  - ANAEMIA [None]
  - STAPHYLOCOCCAL SEPSIS [None]
  - SKIN TOXICITY [None]
  - CARDIAC FAILURE [None]
  - PNEUMONIA BACTERIAL [None]
  - HEADACHE [None]
  - ACUTE MYELOID LEUKAEMIA [None]
